FAERS Safety Report 4641917-2 (Version None)
Quarter: 2005Q2

REPORT INFORMATION
  Report Type: 
  Country: None (occurrence: None)
  Receive Date: 20050421
  Receipt Date: 20050407
  Transmission Date: 20051028
  Serious: Yes (Hospitalization, Other)
  Sender: FDA-Public Use
  Company Number: 2005056654

PATIENT
  Age: 68 Year
  Sex: Female
  Weight: 49.8957 kg

DRUGS (2)
  1. ARTHROTEC [Suspect]
     Indication: ARTHRITIS
     Dosage: ORAL
     Route: 048
  2. HERBAL PREPARATION (HERBAL PREPARATION) [Concomitant]

REACTIONS (12)
  - ANXIETY [None]
  - CONFUSIONAL STATE [None]
  - CONTUSION [None]
  - COUGH [None]
  - DEPENDENCE [None]
  - DISTURBANCE IN ATTENTION [None]
  - IRRITABILITY [None]
  - JAUNDICE [None]
  - OCULAR ICTERUS [None]
  - PARANOIA [None]
  - PSYCHOTIC DISORDER [None]
  - TREMOR [None]
